FAERS Safety Report 8089684-7 (Version None)
Quarter: 2012Q1

REPORT INFORMATION
  Report Type: 
  Country: None (occurrence: None)
  Receive Date: 20120128
  Receipt Date: 20110705
  Transmission Date: 20120608
  Serious: No
  Sender: FDA-Public Use
  Company Number: US-ABBOTT-11P-163-0835985-00

PATIENT
  Sex: Male
  Weight: 90.8 kg

DRUGS (3)
  1. LEXAPRO [Concomitant]
     Indication: ANXIETY
  2. BENICAR [Concomitant]
     Indication: HYPERTENSION
  3. HUMIRA [Suspect]
     Indication: ANKYLOSING SPONDYLITIS
     Dates: start: 20110610

REACTIONS (5)
  - AMNESIA [None]
  - IRRITABILITY [None]
  - DEPRESSION [None]
  - MOOD SWINGS [None]
  - FEELING ABNORMAL [None]
